FAERS Safety Report 12890376 (Version 10)
Quarter: 2017Q2

REPORT INFORMATION
  Report Type: Spontaneous
  Country: US (occurrence: US)
  Receive Date: 20161027
  Receipt Date: 20170413
  Transmission Date: 20170830
  Serious: Yes (Death, Hospitalization)
  Sender: FDA-Public Use
  Company Number: US-ACTELION-A-US2016-144373

PATIENT
  Age: 65 Year
  Sex: Male
  Weight: 58.5 kg

DRUGS (4)
  1. ADCIRCA [Concomitant]
     Active Substance: TADALAFIL
  2. VELETRI [Suspect]
     Active Substance: EPOPROSTENOL
     Indication: PULMONARY ARTERIAL HYPERTENSION
     Dosage: 101 NG/KG, PER MIN
     Route: 042
     Dates: start: 20141107
  3. LETAIRIS [Concomitant]
     Active Substance: AMBRISENTAN
  4. VELETRI [Suspect]
     Active Substance: EPOPROSTENOL
     Dosage: 71 NG/KG, PER MIN
     Route: 042

REACTIONS (11)
  - Death [Fatal]
  - Fall [Unknown]
  - Pneumonia [Unknown]
  - Pulmonary arterial hypertension [Unknown]
  - Catheter management [Unknown]
  - Dyspnoea [Unknown]
  - Device alarm issue [Unknown]
  - Device occlusion [Unknown]
  - Complication associated with device [Unknown]
  - Oedema [Unknown]
  - Fluid overload [Unknown]

NARRATIVE: CASE EVENT DATE: 20161015
